FAERS Safety Report 23122888 (Version 2)
Quarter: 2023Q4

REPORT INFORMATION
  Report Type: Spontaneous
  Country: US (occurrence: US)
  Receive Date: 20231030
  Receipt Date: 20231226
  Transmission Date: 20240109
  Serious: Yes (Death)
  Sender: FDA-Public Use
  Company Number: US-GLAXOSMITHKLINE-US2023147336

PATIENT

DRUGS (1)
  1. TRELEGY ELLIPTA [Suspect]
     Active Substance: FLUTICASONE FUROATE\UMECLIDINIUM BROMIDE\VILANTEROL TRIFENATATE
     Indication: Respiratory failure
     Dosage: UNK,200/62.5/25MCG INH 30
     Dates: start: 20220901, end: 20231020

REACTIONS (2)
  - Fall [Fatal]
  - Product use in unapproved indication [Unknown]
